FAERS Safety Report 21705495 (Version 4)
Quarter: 2023Q2

REPORT INFORMATION
  Report Type: Report from Study
  Country: US (occurrence: US)
  Receive Date: 20221209
  Receipt Date: 20230607
  Transmission Date: 20230722
  Serious: No
  Sender: FDA-Public Use
  Company Number: US-002147023-NVSC2022US286049

PATIENT
  Sex: Female

DRUGS (8)
  1. COSENTYX [Suspect]
     Active Substance: SECUKINUMAB
     Indication: Psoriasis
     Dosage: UNK
     Route: 065
  2. COSENTYX [Suspect]
     Active Substance: SECUKINUMAB
     Dosage: 300 MG
     Route: 058
  3. COSENTYX [Suspect]
     Active Substance: SECUKINUMAB
     Dosage: 300 MG
     Route: 058
  4. DULOXETINE [Suspect]
     Active Substance: DULOXETINE
     Indication: Psoriasis
     Dosage: UNK
     Route: 065
  5. CLOBETASOL [Suspect]
     Active Substance: CLOBETASOL
     Indication: Psoriasis
     Dosage: UNK
     Route: 065
  6. PROTOPIC [Suspect]
     Active Substance: TACROLIMUS
     Indication: Product used for unknown indication
     Dosage: UNK
     Route: 065
  7. ALCOHOL [Suspect]
     Active Substance: ALCOHOL
     Indication: Psoriasis
     Dosage: UNK
     Route: 065
  8. ELIDEL [Suspect]
     Active Substance: PIMECROLIMUS
     Indication: Psoriasis
     Dosage: UNK
     Route: 065

REACTIONS (7)
  - Psoriasis [Unknown]
  - Pruritus [Unknown]
  - Skin exfoliation [Unknown]
  - Arthralgia [Unknown]
  - Product use in unapproved indication [Unknown]
  - Treatment failure [Unknown]
  - Therapeutic product effect incomplete [Unknown]
